FAERS Safety Report 24690101 (Version 1)
Quarter: 2024Q4

REPORT INFORMATION
  Report Type: Spontaneous
  Country: US (occurrence: None)
  Receive Date: 20241202
  Receipt Date: 20241202
  Transmission Date: 20250115
  Serious: Yes (Other)
  Sender: Public
  Company Number: None

PATIENT
  Age: 75 Year
  Sex: Female
  Weight: 65.5 kg

DRUGS (1)
  1. POMALYST [Suspect]
     Active Substance: POMALIDOMIDE
     Indication: Plasma cell myeloma
     Dosage: 1 MG DAILY ORAL
     Route: 048
     Dates: start: 20241016, end: 20241114

REACTIONS (1)
  - Rash [None]

NARRATIVE: CASE EVENT DATE: 20241114
